FAERS Safety Report 8366079-X (Version None)
Quarter: 2012Q2

REPORT INFORMATION
  Report Type: 
  Country: None (occurrence: None)
  Receive Date: 20120517
  Receipt Date: 20120508
  Transmission Date: 20120825
  Serious: Yes (Death, Congenital Anomaly)
  Sender: FDA-Public Use
  Company Number: US-ELI_LILLY_AND_COMPANY-US201205003466

PATIENT

DRUGS (2)
  1. ALCOHOL [Concomitant]
     Dosage: UNK, UNKNOWN
     Route: 064
  2. PROZAC [Suspect]
     Indication: BULIMIA NERVOSA
     Dosage: 60 MG, UNKNOWN
     Route: 064

REACTIONS (2)
  - CYTOGENETIC ABNORMALITY [None]
  - FOETAL EXPOSURE DURING PREGNANCY [None]
